FAERS Safety Report 5803580-4 (Version None)
Quarter: 2008Q3

REPORT INFORMATION
  Report Type: 
  Country: None (occurrence: None)
  Receive Date: 20080703
  Receipt Date: 20080617
  Transmission Date: 20090109
  Serious: Yes (Hospitalization)
  Sender: FDA-Public Use
  Company Number: DSA_32063_2008

PATIENT
  Sex: Female

DRUGS (6)
  1. BI-TILDIEM (BI-TILDIEM - DILTIAZEM HYDROCHLORIDE) (NOT SPECIFIED) [Suspect]
     Indication: DRUG USE FOR UNKNOWN INDICATION
     Dosage: (DF ORAL)
     Route: 048
     Dates: start: 20040101
  2. LASILIX /00032601/ (LASILIX - FUROSEMIDE) (NOT SPECIFIED) [Suspect]
     Indication: DRUG USE FOR UNKNOWN INDICATION
     Dosage: (DF ORAL)
     Route: 048
     Dates: start: 20040101
  3. PREVISCAN /00789001/ (PREVISCAN FLUINDIONE) 20 MG (NOT SPECIFIED) [Suspect]
     Indication: DRUG USE FOR UNKNOWN INDICATION
     Dosage: (DF ORAL)
     Route: 048
     Dates: start: 20040101
  4. KALEORID [Concomitant]
  5. LEVOTHYROX [Concomitant]
  6. IMOVANE [Concomitant]

REACTIONS (2)
  - LEUKOCYTOCLASTIC VASCULITIS [None]
  - VASCULITIS NECROTISING [None]
